FAERS Safety Report 19806918 (Version 1)
Quarter: 2021Q3

REPORT INFORMATION
  Report Type: Spontaneous
  Country: US (occurrence: US)
  Receive Date: 20210908
  Receipt Date: 20210908
  Transmission Date: 20211014
  Serious: Yes (Death, Other)
  Sender: FDA-Public Use
  Company Number: US-AMGEN-USASP2021138638

PATIENT

DRUGS (3)
  1. BLINATUMOMAB [Suspect]
     Active Substance: BLINATUMOMAB
     Indication: B PRECURSOR TYPE ACUTE LEUKAEMIA
     Dosage: 9 MICROGRAM, QD, ON DAYS 1,7
     Route: 065
  2. PEMBROLIZUMAB. [Concomitant]
     Active Substance: PEMBROLIZUMAB
     Dosage: ON DAY 15 (SCHEDULE A) OR DAY 22 (SCHEDULE B) IN CYCLE I AND ON DAYS I AND 22 IN SUBSEQUENT CYCLES.
  3. BLINATUMOMAB [Suspect]
     Active Substance: BLINATUMOMAB
     Dosage: 28 MICROGRAM, QD, ON DAYS 8?28 IN CYCLE 1, ON DAYS 1?28 IN SUBSEQUENT CYCLES
     Route: 065

REACTIONS (4)
  - Neurotoxicity [Unknown]
  - Cytokine release syndrome [Unknown]
  - Toxicity to various agents [Unknown]
  - Death [Fatal]
